FAERS Safety Report 8831213 (Version 1)
Quarter: 2012Q4

REPORT INFORMATION
  Report Type: Report from Study
  Country: US (occurrence: US)
  Receive Date: 20121008
  Receipt Date: 20121008
  Transmission Date: 20130627
  Serious: Yes (Hospitalization)
  Sender: FDA-Public Use
  Company Number: US-ASTELLAS-2012US009774

PATIENT
  Sex: Female
  Weight: 100 kg

DRUGS (1)
  1. ERLOTINIB TABLET [Suspect]
     Indication: UTERINE CANCER
     Dosage: 2 DF, UID/QD
     Route: 048
     Dates: end: 2012

REACTIONS (2)
  - Off label use [Unknown]
  - Appendicitis [Unknown]
